FAERS Safety Report 8604830 (Version 2)
Quarter: 2013Q4

REPORT INFORMATION
  Report Type: Report from Study
  Country: US (occurrence: US)
  Receive Date: 20120608
  Receipt Date: 20131203
  Transmission Date: 20140711
  Serious: Yes (Death, Hospitalization)
  Sender: FDA-Public Use
  Company Number: US-ELI_LILLY_AND_COMPANY-US201205010827

PATIENT
  Age: 86 Year
  Sex: Female

DRUGS (13)
  1. TERIPARATIDE [Suspect]
     Indication: OSTEOPOROSIS
     Dosage: 20 UG, QD
     Route: 065
     Dates: start: 20120425, end: 20120429
  2. ENTOCORT [Concomitant]
     Dosage: UNK
  3. PREDNISONE [Concomitant]
     Indication: PULMONARY FIBROSIS
     Dosage: UNK
  4. DILTIAZEM [Concomitant]
     Dosage: UNK
  5. SYNTHROID [Concomitant]
     Dosage: UNK
  6. COZAAR [Concomitant]
     Dosage: UNK
  7. NEXIUM [Concomitant]
     Dosage: UNK
  8. SPIRIVA [Concomitant]
     Dosage: UNK
  9. ULTRACET [Concomitant]
     Dosage: UNK
  10. XOPENEX HFA [Concomitant]
     Dosage: UNK
  11. ALBUTEROL [Concomitant]
     Dosage: UNK
  12. MULTI-VIT [Concomitant]
     Dosage: UNK
  13. CALCIUM WITH VITAMIN D [Concomitant]
     Dosage: UNK

REACTIONS (3)
  - Death [Fatal]
  - Inner ear disorder [Unknown]
  - Decreased appetite [Unknown]
